FAERS Safety Report 6275468-9 (Version None)
Quarter: 2009Q3

REPORT INFORMATION
  Report Type: 
  Country: None (occurrence: None)
  Receive Date: 20090721
  Receipt Date: 20090713
  Transmission Date: 20100115
  Serious: Yes (Hospitalization, Disabling, Other)
  Sender: FDA-Public Use
  Company Number: US-MERCK-0904USA03164

PATIENT
  Age: 71 Year
  Sex: Female

DRUGS (7)
  1. FOSAMAX [Suspect]
     Indication: OSTEOPOROSIS
     Route: 048
  2. METHOTREXATE [Concomitant]
     Route: 048
  3. PREVACID [Concomitant]
     Route: 048
  4. ALBUTEROL [Concomitant]
     Route: 048
  5. CELEBREX [Concomitant]
     Route: 048
  6. SYNTHROID [Concomitant]
     Route: 048
  7. COLACE [Concomitant]
     Route: 048

REACTIONS (8)
  - CONTUSION [None]
  - DEPRESSED LEVEL OF CONSCIOUSNESS [None]
  - FALL [None]
  - FEMUR FRACTURE [None]
  - FRACTURE [None]
  - HYPERTENSION [None]
  - LOWER LIMB FRACTURE [None]
  - SCOLIOSIS [None]
